FAERS Safety Report 7634462-3 (Version None)
Quarter: 2011Q3

REPORT INFORMATION
  Report Type: 
  Country: None (occurrence: None)
  Receive Date: 20110725
  Receipt Date: 20110715
  Transmission Date: 20111222
  Serious: Yes (Hospitalization)
  Sender: FDA-Public Use
  Company Number: PHHY2011DE45597

PATIENT
  Sex: Female
  Weight: 84 kg

DRUGS (3)
  1. GILENYA [Suspect]
     Indication: MULTIPLE SCLEROSIS
     Dosage: 05 MG, QD
     Route: 048
     Dates: start: 20110426, end: 20110512
  2. LYRICA [Concomitant]
     Indication: PARAESTHESIA
     Dosage: 250 MG, QD
     Route: 048
  3. CITALOPRAM HYDROBROMIDE [Concomitant]
     Indication: DEPRESSION
     Dosage: UNK
     Route: 048

REACTIONS (4)
  - RASH [None]
  - DYSPNOEA [None]
  - PRURITUS [None]
  - OEDEMA MOUTH [None]
